APPROVED DRUG PRODUCT: FOSINOPRIL SODIUM AND HYDROCHLOROTHIAZIDE
Active Ingredient: FOSINOPRIL SODIUM; HYDROCHLOROTHIAZIDE
Strength: 10MG;12.5MG
Dosage Form/Route: TABLET;ORAL
Application: A076608 | Product #001
Applicant: ANI PHARMACEUTICALS INC
Approved: Dec 3, 2004 | RLD: No | RS: No | Type: DISCN